FAERS Safety Report 16244088 (Version 2)
Quarter: 2019Q2

REPORT INFORMATION
  Report Type: Spontaneous
  Country: BE (occurrence: BE)
  Receive Date: 20190426
  Receipt Date: 20190502
  Transmission Date: 20190711
  Serious: Yes (Hospitalization, Other)
  Sender: FDA-Public Use
  Company Number: BE-PFIZER INC-2019177108

PATIENT
  Age: 45 Year
  Sex: Female

DRUGS (5)
  1. IRON [Concomitant]
     Active Substance: IRON
     Route: 048
  2. PANTOPRAZOLE [Suspect]
     Active Substance: PANTOPRAZOLE
     Indication: GASTRIC ULCER
     Dosage: 40 MG, 1X/DAY
     Route: 065
  3. CEFTRIAXONE. [Suspect]
     Active Substance: CEFTRIAXONE
     Indication: URINARY TRACT INFECTION
     Dosage: UNK
  4. CEFTRIAXONE. [Suspect]
     Active Substance: CEFTRIAXONE
     Indication: ESCHERICHIA SEPSIS
  5. ADALIMUMAB [Suspect]
     Active Substance: ADALIMUMAB
     Indication: PSORIASIS
     Dosage: 40 MG, UNK (EVERY 2 WEEKS)
     Route: 065

REACTIONS (10)
  - Pyelonephritis acute [Recovering/Resolving]
  - Tuberculosis [Unknown]
  - Urinary tract obstruction [Recovering/Resolving]
  - Sepsis [Recovering/Resolving]
  - Acute kidney injury [Recovering/Resolving]
  - Urinary tract infection [Recovering/Resolving]
  - Blood creatinine increased [Recovering/Resolving]
  - Tubulointerstitial nephritis [Recovering/Resolving]
  - Escherichia infection [Recovering/Resolving]
  - Proteinuria [Unknown]
